FAERS Safety Report 24350654 (Version 3)
Quarter: 2024Q3

REPORT INFORMATION
  Report Type: Spontaneous
  Country: US (occurrence: US)
  Receive Date: 20240923
  Receipt Date: 20240930
  Transmission Date: 20241016
  Serious: No
  Sender: PFIZER
  Company Number: US-PFIZER INC-202400257495

PATIENT
  Age: 37 Year
  Sex: Female

DRUGS (1)
  1. GENOTROPIN [Suspect]
     Active Substance: SOMATROPIN
     Dosage: 0.8 MG, DAILY

REACTIONS (6)
  - Device leakage [Unknown]
  - Drug dose omission by device [Unknown]
  - Fatigue [Unknown]
  - Device defective [Unknown]
  - Device material opacification [Unknown]
  - Device use issue [Unknown]
